FAERS Safety Report 23779350 (Version 1)
Quarter: 2024Q2

REPORT INFORMATION
  Report Type: Report from Study
  Country: PH (occurrence: PH)
  Receive Date: 20240424
  Receipt Date: 20240424
  Transmission Date: 20240715
  Serious: Yes (Death)
  Sender: FDA-Public Use
  Company Number: PH-OTSUKA-2024_011603

PATIENT
  Age: 55 Year
  Sex: Female

DRUGS (1)
  1. TOLVAPTAN [Suspect]
     Active Substance: TOLVAPTAN
     Indication: Hypervolaemia
     Dosage: 1 DF, QD (15 MG 1 TABLET A DAY)
     Route: 048
     Dates: start: 202311, end: 20231219

REACTIONS (2)
  - Arrhythmia [Fatal]
  - Product use in unapproved indication [Unknown]

NARRATIVE: CASE EVENT DATE: 20231101
